FAERS Safety Report 21465238 (Version 2)
Quarter: 2022Q4

REPORT INFORMATION
  Report Type: Report from Study
  Country: FR (occurrence: None)
  Receive Date: 20221017
  Receipt Date: 20221128
  Transmission Date: 20230113
  Serious: Yes (Other)
  Sender: FDA-Public Use
  Company Number: 2022A344732

PATIENT
  Sex: Female
  Weight: 87.5 kg

DRUGS (3)
  1. EVUSHELD [Suspect]
     Active Substance: CILGAVIMAB\TIXAGEVIMAB
     Indication: COVID-19 prophylaxis
     Dosage: ONCE/SINGLE ADMINISTRATION
     Route: 030
     Dates: start: 20220223
  2. SOLUPRED [Concomitant]
  3. MYFORTIC [Concomitant]
     Active Substance: MYCOPHENOLATE SODIUM

REACTIONS (1)
  - Cerebrovascular accident [Unknown]
